FAERS Safety Report 21060336 (Version 1)
Quarter: 2022Q3

REPORT INFORMATION
  Report Type: Spontaneous
  Country: US (occurrence: US)
  Receive Date: 20220708
  Receipt Date: 20220708
  Transmission Date: 20221027
  Serious: No
  Sender: FDA-Public Use
  Company Number: US-SA-SAC20220705000129

PATIENT
  Age: 46 Year
  Sex: Female

DRUGS (12)
  1. DUPIXENT [Suspect]
     Active Substance: DUPILUMAB
     Indication: Dermatitis atopic
     Dosage: 300 MG, QOW
     Route: 058
  2. EUCRISA [Concomitant]
     Active Substance: CRISABOROLE
  3. CEPHALEXIN [Concomitant]
     Active Substance: CEPHALEXIN
  4. DOXEPIN HCL [Concomitant]
     Active Substance: DOXEPIN HYDROCHLORIDE
  5. ELIDEL [Concomitant]
     Active Substance: PIMECROLIMUS
  6. EPINEPHRINE [Concomitant]
     Active Substance: EPINEPHRINE
  7. MONTELUKAST [Concomitant]
     Active Substance: MONTELUKAST SODIUM
  8. MUPIROCIN [Concomitant]
     Active Substance: MUPIROCIN
  9. PREDNISONE [Concomitant]
     Active Substance: PREDNISONE
  10. VENTOLIN HFA [Concomitant]
     Active Substance: ALBUTEROL SULFATE
  11. AER [Concomitant]
  12. ALCLOMETASONE [Concomitant]
     Active Substance: ALCLOMETASONE

REACTIONS (1)
  - Drug ineffective [Unknown]
